FAERS Safety Report 25799939 (Version 3)
Quarter: 2025Q3

REPORT INFORMATION
  Report Type: Spontaneous
  Country: CN (occurrence: CN)
  Receive Date: 20250914
  Receipt Date: 20250919
  Transmission Date: 20251021
  Serious: Yes (Hospitalization)
  Sender: ABBVIE
  Company Number: CN-ABBVIE-6453691

PATIENT
  Age: 65 Year
  Sex: Male
  Weight: 59 kg

DRUGS (5)
  1. VENETOCLAX [Suspect]
     Active Substance: VENETOCLAX
     Indication: Neoplasm
     Dosage: D1 100 MILLIGRAM
     Route: 048
     Dates: start: 20250829, end: 20250910
  2. VENETOCLAX [Suspect]
     Active Substance: VENETOCLAX
     Indication: Neoplasm
     Dosage: D2 200 MG, FIRST ADMIN DATE AND LAST ADMIN DATE 2025
     Route: 048
  3. VENETOCLAX [Suspect]
     Active Substance: VENETOCLAX
     Indication: Neoplasm
     Dosage: D3 400 MG, FIRST ADMIN DATE 2025
     Route: 048
  4. WATER FOR INJECTION [Concomitant]
     Active Substance: WATER
     Indication: Vehicle solution use
     Dosage: 4 ML STERILE
     Route: 058
     Dates: start: 20250829, end: 20250904
  5. AZACITIDINE [Suspect]
     Active Substance: AZACITIDINE
     Indication: Neoplasm
     Dosage: 130 MILLIGRAM
     Route: 058
     Dates: start: 20250829, end: 20250904

REACTIONS (1)
  - Myelosuppression [Unknown]

NARRATIVE: CASE EVENT DATE: 20250904
